FAERS Safety Report 23742577 (Version 1)
Quarter: 2024Q2

REPORT INFORMATION
  Report Type: Spontaneous
  Country: NL (occurrence: US)
  Receive Date: 20240415
  Receipt Date: 20240415
  Transmission Date: 20240715
  Serious: Yes (Other)
  Sender: FDA-Public Use
  Company Number: NL-SEBELA IRELAND LIMITED-2024SEB00027

PATIENT
  Age: 62 Year
  Sex: Male

DRUGS (2)
  1. AZATHIOPRINE [Suspect]
     Active Substance: AZATHIOPRINE
     Indication: Pericarditis
  2. PREDNISONE [Concomitant]
     Active Substance: PREDNISONE
     Indication: Pericarditis
     Dosage: TAPERED

REACTIONS (2)
  - Respiratory failure [Recovered/Resolved]
  - Eosinophilic pneumonia [Recovered/Resolved]
